FAERS Safety Report 12905509 (Version 2)
Quarter: 2017Q1

REPORT INFORMATION
  Report Type: Spontaneous
  Country: US (occurrence: US)
  Receive Date: 20161103
  Receipt Date: 20170111
  Transmission Date: 20170428
  Serious: No
  Sender: FDA-Public Use
  Company Number: US-009507513-1610USA011440

PATIENT
  Age: 67 Year
  Sex: Male
  Weight: 123.81 kg

DRUGS (12)
  1. METFORMIN [Concomitant]
     Active Substance: METFORMIN HYDROCHLORIDE
     Indication: TYPE 2 DIABETES MELLITUS
     Dosage: TAKE 1 TABLET (1000 MG) BY ORAL ROUTE 2 TIMES PER DAY WITH MORNING AND EVENING MEALS
     Route: 048
     Dates: start: 20160907
  2. FUROSEMIDE. [Concomitant]
     Active Substance: FUROSEMIDE
     Indication: CARDIAC FAILURE CONGESTIVE
     Dosage: TAKE 1 TABLET (40 MG) BY ORAL ROUTE ONCE DAILY
     Route: 048
     Dates: start: 20161019
  3. INSULIN [Concomitant]
     Active Substance: INSULIN NOS
     Dosage: 2 TIMES PER DAY USE AS DIRECTED FOR DX
     Dates: start: 20160921
  4. ATORVASTATIN [Concomitant]
     Active Substance: ATORVASTATIN
     Indication: HYPERLIPIDAEMIA
     Dosage: TAKE 1 TABLET (40) MG BY ORAL ROUTE ONCE DAILY AT BEDTIME
     Route: 048
     Dates: start: 20160907
  5. ASPIRIN. [Concomitant]
     Active Substance: ASPIRIN
     Indication: CARDIAC FAILURE CONGESTIVE
     Dosage: TAKE 1 TABLET (81 MG) BY ORAL ROUTE ONCE DAILY
     Route: 048
     Dates: start: 20161025
  6. JANUVIA [Suspect]
     Active Substance: SITAGLIPTIN PHOSPHATE
     Dosage: 25 MG, UNK
     Route: 048
     Dates: start: 20160907, end: 20160920
  7. CHOLECALCIFEROL [Concomitant]
     Active Substance: CHOLECALCIFEROL
     Indication: VITAMIN D DEFICIENCY
     Dosage: ONCE DAILY
     Route: 048
     Dates: start: 20161017
  8. SUPER B COMPLEX + C TABLET [Concomitant]
     Dosage: 1 TABLET 1 TIME PER DAY WITH A MEAL
     Dates: start: 20160907
  9. JANUVIA [Suspect]
     Active Substance: SITAGLIPTIN PHOSPHATE
     Indication: TYPE 2 DIABETES MELLITUS
     Dosage: 100 MG, DAILY
     Route: 048
     Dates: start: 20160921, end: 20161017
  10. NAPROXEN. [Concomitant]
     Active Substance: NAPROXEN
     Indication: ARTHRITIS
     Dosage: TAKE 1 TABLET (220 MG) BY ORAL ROUTE EVERY 8 HOURS AS NEEDED PRN
     Route: 048
     Dates: start: 20160907
  11. OMEPRAZOLE. [Concomitant]
     Active Substance: OMEPRAZOLE
     Indication: GASTROOESOPHAGEAL REFLUX DISEASE
     Dosage: TAKE 1 CAPSULE (20 MG) BY ORAL ROUTE ONCE DAILY BEFORE A MEAL
     Route: 048
     Dates: start: 20160907
  12. PLAVIX [Concomitant]
     Active Substance: CLOPIDOGREL BISULFATE
     Indication: CARDIAC FAILURE CONGESTIVE
     Dosage: 75 MG, QD
     Route: 048

REACTIONS (3)
  - Rash [Recovered/Resolved]
  - Purpura [Recovered/Resolved]
  - Cutaneous vasculitis [Recovering/Resolving]

NARRATIVE: CASE EVENT DATE: 2016
